FAERS Safety Report 19751109 (Version 1)
Quarter: 2021Q3

REPORT INFORMATION
  Report Type: Report from Study
  Country: US (occurrence: US)
  Receive Date: 20210826
  Receipt Date: 20210826
  Transmission Date: 20211014
  Serious: No
  Sender: FDA-Public Use
  Company Number: US-IPSEN BIOPHARMACEUTICALS, INC.-2021-20447

PATIENT
  Age: 63 Year
  Sex: Male

DRUGS (7)
  1. AMLODIPINE [Concomitant]
     Active Substance: AMLODIPINE BESYLATE
  2. SOMATULINE DEPOT [Suspect]
     Active Substance: LANREOTIDE ACETATE
     Indication: CARCINOID SYNDROME
     Route: 058
     Dates: start: 201811
  3. ONDANSETRON [Concomitant]
     Active Substance: ONDANSETRON
  4. SUTENT [Suspect]
     Active Substance: SUNITINIB MALATE
     Indication: PRODUCT USED FOR UNKNOWN INDICATION
     Route: 065
  5. METOPROLOL. [Concomitant]
     Active Substance: METOPROLOL
  6. HCTZ [Concomitant]
     Active Substance: HYDROCHLOROTHIAZIDE
  7. LOSARTAN. [Concomitant]
     Active Substance: LOSARTAN

REACTIONS (6)
  - Condition aggravated [Unknown]
  - Diarrhoea [Unknown]
  - Nausea [Not Recovered/Not Resolved]
  - Dizziness [Unknown]
  - Gastrooesophageal reflux disease [Unknown]
  - Pain [Unknown]

NARRATIVE: CASE EVENT DATE: 2018
